FAERS Safety Report 5100598-4 (Version None)
Quarter: 2006Q3

REPORT INFORMATION
  Report Type: 
  Country: None (occurrence: None)
  Receive Date: 20060907
  Receipt Date: 20060907
  Transmission Date: 20061208
  Serious: Yes (Life-Threatening, Hospitalization)
  Sender: FDA-Public Use
  Company Number: None

PATIENT
  Age: 32 Year
  Sex: Female
  Weight: 82.5547 kg

DRUGS (3)
  1. SEASONALE [Suspect]
     Indication: CONVULSION
     Dosage: 1 PILL   ONCE A DAY   PO
     Route: 048
     Dates: start: 20060226, end: 20060828
  2. SEASONALE [Suspect]
     Indication: MENSTRUAL DISORDER
     Dosage: 1 PILL   ONCE A DAY   PO
     Route: 048
     Dates: start: 20060226, end: 20060828
  3. SEASONALE [Suspect]
     Indication: MIGRAINE
     Dosage: 1 PILL   ONCE A DAY   PO
     Route: 048
     Dates: start: 20060226, end: 20060828

REACTIONS (1)
  - REVERSIBLE ISCHAEMIC NEUROLOGICAL DEFICIT [None]
